FAERS Safety Report 8506623-2 (Version None)
Quarter: 2012Q3

REPORT INFORMATION
  Report Type: 
  Country: None (occurrence: None)
  Receive Date: 20120712
  Receipt Date: 20120703
  Transmission Date: 20120928
  Serious: Yes (Hospitalization, Disabling, Other)
  Sender: FDA-Public Use
  Company Number: US-009507513-1110USA01114

PATIENT

DRUGS (2)
  1. FOSAMAX [Suspect]
     Indication: OSTEOPOROSIS
     Dosage: 70 MG, UNK
     Route: 048
     Dates: start: 19980101, end: 20091003
  2. FOSAMAX [Suspect]
     Indication: OSTEOPENIA
     Dosage: 10 MG, QD
     Route: 048

REACTIONS (45)
  - URINARY TRACT OBSTRUCTION [None]
  - RECTOCELE [None]
  - PROCEDURAL PAIN [None]
  - HERNIA [None]
  - OSTEOARTHRITIS [None]
  - OEDEMA PERIPHERAL [None]
  - GASTROOESOPHAGEAL REFLUX DISEASE [None]
  - CONSTIPATION [None]
  - ADVERSE EVENT [None]
  - UTERINE DISORDER [None]
  - BODY HEIGHT ABNORMAL [None]
  - CYSTOCELE [None]
  - ANGIOPATHY [None]
  - TONSILLAR DISORDER [None]
  - FOOT DEFORMITY [None]
  - URINARY RETENTION [None]
  - MUSCULOSKELETAL PAIN [None]
  - UTEROVAGINAL PROLAPSE [None]
  - ANAEMIA [None]
  - ANAEMIA POSTOPERATIVE [None]
  - LOW TURNOVER OSTEOPATHY [None]
  - URINARY TRACT INFECTION [None]
  - HYPERCHOLESTEROLAEMIA [None]
  - JOINT EFFUSION [None]
  - GASTROINTESTINAL HAEMORRHAGE [None]
  - TIBIA FRACTURE [None]
  - FEMUR FRACTURE [None]
  - RADIUS FRACTURE [None]
  - ARTHROPATHY [None]
  - NASOPHARYNGITIS [None]
  - ARTHRITIS [None]
  - ROTATOR CUFF SYNDROME [None]
  - LIGAMENT SPRAIN [None]
  - PEPTIC ULCER [None]
  - ARTHRALGIA [None]
  - VITAMIN D DEFICIENCY [None]
  - FALL [None]
  - CHONDROMALACIA [None]
  - BURSITIS [None]
  - FIBULA FRACTURE [None]
  - SENILE OSTEOPOROSIS [None]
  - VAGINAL INFECTION [None]
  - NEUROPATHY PERIPHERAL [None]
  - PAIN IN EXTREMITY [None]
  - HYPOCALCAEMIA [None]
